FAERS Safety Report 25247066 (Version 1)
Quarter: 2025Q2

REPORT INFORMATION
  Report Type: Spontaneous
  Country: FR (occurrence: FR)
  Receive Date: 20250428
  Receipt Date: 20250428
  Transmission Date: 20250716
  Serious: Yes (Other)
  Sender: MYLAN
  Company Number: None

PATIENT
  Age: 53 Year
  Sex: Male
  Weight: 100 kg

DRUGS (16)
  1. LANSOPRAZOLE [Suspect]
     Active Substance: LANSOPRAZOLE
     Indication: Product used for unknown indication
     Dosage: 15 GRAM, QD
     Dates: start: 202503, end: 20250316
  2. LANSOPRAZOLE [Suspect]
     Active Substance: LANSOPRAZOLE
     Dosage: 15 GRAM, QD
     Route: 048
     Dates: start: 202503, end: 20250316
  3. LANSOPRAZOLE [Suspect]
     Active Substance: LANSOPRAZOLE
     Dosage: 15 GRAM, QD
     Route: 048
     Dates: start: 202503, end: 20250316
  4. LANSOPRAZOLE [Suspect]
     Active Substance: LANSOPRAZOLE
     Dosage: 15 GRAM, QD
     Dates: start: 202503, end: 20250316
  5. CEFTRIAXONE [Suspect]
     Active Substance: CEFTRIAXONE
     Indication: Endocarditis
     Dosage: 1 GRAM, BID
     Dates: start: 20250228, end: 20250317
  6. CEFTRIAXONE [Suspect]
     Active Substance: CEFTRIAXONE
     Dosage: 1 GRAM, BID
     Route: 042
     Dates: start: 20250228, end: 20250317
  7. CEFTRIAXONE [Suspect]
     Active Substance: CEFTRIAXONE
     Dosage: 1 GRAM, BID
     Route: 042
     Dates: start: 20250228, end: 20250317
  8. CEFTRIAXONE [Suspect]
     Active Substance: CEFTRIAXONE
     Dosage: 1 GRAM, BID
     Dates: start: 20250228, end: 20250317
  9. SPIRONOLACTONE [Suspect]
     Active Substance: SPIRONOLACTONE
     Indication: Product used for unknown indication
     Dosage: 50 MILLIGRAM, QD
     Dates: start: 202503, end: 20250316
  10. SPIRONOLACTONE [Suspect]
     Active Substance: SPIRONOLACTONE
     Dosage: 50 MILLIGRAM, QD
     Route: 048
     Dates: start: 202503, end: 20250316
  11. SPIRONOLACTONE [Suspect]
     Active Substance: SPIRONOLACTONE
     Dosage: 50 MILLIGRAM, QD
     Route: 048
     Dates: start: 202503, end: 20250316
  12. SPIRONOLACTONE [Suspect]
     Active Substance: SPIRONOLACTONE
     Dosage: 50 MILLIGRAM, QD
     Dates: start: 202503, end: 20250316
  13. AMOXICILLIN [Suspect]
     Active Substance: AMOXICILLIN
     Indication: Endocarditis
     Dosage: 16 GRAM, QD
     Dates: start: 20250228
  14. AMOXICILLIN [Suspect]
     Active Substance: AMOXICILLIN
     Dosage: 16 GRAM, QD
     Route: 042
     Dates: start: 20250228
  15. AMOXICILLIN [Suspect]
     Active Substance: AMOXICILLIN
     Dosage: 16 GRAM, QD
     Route: 042
     Dates: start: 20250228
  16. AMOXICILLIN [Suspect]
     Active Substance: AMOXICILLIN
     Dosage: 16 GRAM, QD
     Dates: start: 20250228

REACTIONS (1)
  - Hepatitis cholestatic [Not Recovered/Not Resolved]

NARRATIVE: CASE EVENT DATE: 20250316
